FAERS Safety Report 6097409-X (Version None)
Quarter: 2009Q1

REPORT INFORMATION
  Report Type: 
  Country: None (occurrence: None)
  Receive Date: 20090227
  Receipt Date: 20080515
  Transmission Date: 20090719
  Serious: No
  Sender: FDA-Public Use
  Company Number: A0715518A

PATIENT
  Age: 48 Year
  Sex: Female

DRUGS (13)
  1. IMITREX [Suspect]
     Indication: MIGRAINE
     Dosage: 6MG AS REQUIRED
     Route: 058
     Dates: start: 20060101
  2. IMITREX [Suspect]
     Route: 045
  3. IMITREX [Suspect]
     Route: 048
  4. CYMBALTA [Concomitant]
  5. VITAMIN [Concomitant]
  6. MAGNESIUM SULFATE [Concomitant]
  7. COENZYME Q10 [Concomitant]
  8. TOPAMAX [Concomitant]
  9. BETA BLOCKER [Concomitant]
  10. ACE INHIBITOR [Concomitant]
  11. BUSPAR [Concomitant]
  12. IBUPROFEN [Concomitant]
  13. STEROIDS [Concomitant]

REACTIONS (4)
  - DRUG EFFECT DECREASED [None]
  - DRUG INEFFECTIVE [None]
  - PRODUCT QUALITY ISSUE [None]
  - THROAT TIGHTNESS [None]
